FAERS Safety Report 8358476-3 (Version None)
Quarter: 2012Q2

REPORT INFORMATION
  Report Type: 
  Country: None (occurrence: None)
  Receive Date: 20120514
  Receipt Date: 20120507
  Transmission Date: 20120825
  Serious: Yes (Hospitalization, Other)
  Sender: FDA-Public Use
  Company Number: US-BAYER-2011-062997

PATIENT
  Age: 17 Year
  Sex: Female
  Weight: 79 kg

DRUGS (1)
  1. YAZ [Suspect]
     Indication: CONTRACEPTION
     Dosage: UNK
     Dates: start: 20080409, end: 20090601

REACTIONS (5)
  - PAIN [None]
  - INJURY [None]
  - CHOLELITHIASIS [None]
  - CHOLECYSTECTOMY [None]
  - SPHINCTER OF ODDI DYSFUNCTION [None]
